FAERS Safety Report 7385276-3 (Version None)
Quarter: 2011Q1

REPORT INFORMATION
  Report Type: 
  Country: None (occurrence: None)
  Receive Date: 20110330
  Receipt Date: 20100308
  Transmission Date: 20110831
  Serious: No
  Sender: FDA-Public Use
  Company Number: US-MYLANLABS-2010S1003956

PATIENT
  Age: 66 Year
  Sex: Female

DRUGS (3)
  1. EMSAM [Suspect]
     Indication: DEPRESSION
     Dosage: CHANGED PATCHES QD
     Route: 062
     Dates: start: 20100101
  2. XANAX [Concomitant]
  3. VICODIN [Concomitant]

REACTIONS (5)
  - APPLICATION SITE PAIN [None]
  - APPLICATION SITE ERYTHEMA [None]
  - APPLICATION SITE BLEEDING [None]
  - APPLICATION SITE PRURITUS [None]
  - APPLICATION SITE HYPERSENSITIVITY [None]
